FAERS Safety Report 6505840-0 (Version None)
Quarter: 2009Q4

REPORT INFORMATION
  Report Type: 
  Country: None (occurrence: None)
  Receive Date: 20091217
  Receipt Date: 20091217
  Transmission Date: 20100525
  Serious: Yes (Hospitalization)
  Sender: FDA-Public Use
  Company Number: None

PATIENT
  Age: 43 Year
  Sex: Female
  Weight: 104.3273 kg

DRUGS (2)
  1. SEROQUEL XR [Suspect]
     Indication: BIPOLAR DISORDER
     Dosage: 600 EVENING AT 8:30P.M PO
     Route: 048
     Dates: start: 20091026, end: 20091116
  2. SEROQUEL XR [Suspect]
     Indication: PARANOIA
     Dosage: 600 EVENING AT 8:30P.M PO
     Route: 048
     Dates: start: 20091026, end: 20091116

REACTIONS (6)
  - ANGER [None]
  - DEPRESSION [None]
  - HOSTILITY [None]
  - IRRITABILITY [None]
  - PARANOIA [None]
  - THINKING ABNORMAL [None]
